FAERS Safety Report 9470294 (Version 1)
Quarter: 2013Q3

REPORT INFORMATION
  Report Type: Spontaneous
  Country: US (occurrence: US)
  Receive Date: 20130822
  Receipt Date: 20130822
  Transmission Date: 20140515
  Serious: No
  Sender: FDA-Public Use
  Company Number: US-SANOFI-AVENTIS-2012SA056753

PATIENT
  Age: 70 Year
  Sex: Male
  Weight: 95 kg

DRUGS (22)
  1. MULTAQ [Suspect]
     Indication: ATRIAL FIBRILLATION
     Route: 048
     Dates: start: 20120801
  2. LANTUS [Suspect]
     Dosage: 16-18 UNITS PRIOR TO MULTAQ, BUT NOW HE CAN GET BY WITH 14 UNITS OR LESS.
     Route: 058
  3. GLUCOPHAGE [Concomitant]
  4. GLUCOTROL [Concomitant]
  5. ACTOS /USA/ [Concomitant]
  6. ASPIRIN [Concomitant]
  7. NASONEX [Concomitant]
     Route: 045
  8. MAGNESIUM OXIDE [Concomitant]
  9. ATROVENT [Concomitant]
     Route: 055
  10. PRILOSEC [Concomitant]
  11. AMLODIPINE BESILATE [Concomitant]
  12. VITAMIN D [Concomitant]
  13. NEURONTIN [Concomitant]
  14. MAXZIDE [Concomitant]
  15. VITAMIN B12 [Concomitant]
  16. POTASSIUM GLUCONATE [Concomitant]
  17. COENZYME Q10 [Concomitant]
  18. AVAPRO [Concomitant]
  19. FOLIC ACID [Concomitant]
  20. PRAVACHOL [Concomitant]
     Dosage: ON PRAVACHOL PRIOR TO MULTAQ, STOPPED WHEN STARTED MULTAQ, SUPPOSED TO RESTART
  21. COREG [Concomitant]
  22. ALPRAZOLAM [Concomitant]
     Dosage: TAKE 0.25 MG BY MOUTH NIGHTLY AS NEEDED. 1/2 TABLET PM

REACTIONS (3)
  - Hyperglycaemia [Unknown]
  - Hypoglycaemia [Unknown]
  - Tremor [Unknown]
